FAERS Safety Report 7481221-0 (Version None)
Quarter: 2011Q2

REPORT INFORMATION
  Report Type: 
  Country: None (occurrence: None)
  Receive Date: 20110506
  Receipt Date: 20110502
  Transmission Date: 20111010
  Serious: Yes (Hospitalization)
  Sender: FDA-Public Use
  Company Number: 2010SP009187

PATIENT
  Age: 22 Year
  Sex: Female
  Weight: 108.8633 kg

DRUGS (6)
  1. GAVISCON [Concomitant]
  2. KETOROLAC TROMETHAMINE [Concomitant]
  3. NUVARING [Suspect]
     Indication: CONTRACEPTION
     Dosage: 1 DF;Q3W;VAG
     Route: 067
     Dates: start: 20080715, end: 20090701
  4. AZITHROMYCIN [Concomitant]
  5. FLUCONAZOLE [Concomitant]
  6. CLOBETASOL PROPIONATE [Concomitant]

REACTIONS (49)
  - TOOTHACHE [None]
  - MIGRAINE [None]
  - CEREBRAL VENOUS THROMBOSIS [None]
  - ARTHRALGIA [None]
  - VAGINAL INFECTION [None]
  - CONVULSION [None]
  - OROPHARYNGEAL PAIN [None]
  - VULVOVAGINAL DISCOMFORT [None]
  - CHLAMYDIAL INFECTION [None]
  - PROTEIN S DECREASED [None]
  - EAR DISCOMFORT [None]
  - CYANOSIS [None]
  - SOMNOLENCE [None]
  - PROTEIN URINE PRESENT [None]
  - VISION BLURRED [None]
  - COAGULOPATHY [None]
  - RHINITIS ALLERGIC [None]
  - UPPER-AIRWAY COUGH SYNDROME [None]
  - THROAT IRRITATION [None]
  - PRURITUS [None]
  - DRUG INTERACTION [None]
  - CHEST PAIN [None]
  - TENSION HEADACHE [None]
  - FACIAL PAIN [None]
  - FATIGUE [None]
  - CALCINOSIS [None]
  - GLOSSITIS [None]
  - THERMAL BURN [None]
  - HEADACHE [None]
  - PRODUCTIVE COUGH [None]
  - BLOOD PRESSURE INCREASED [None]
  - VULVOVAGINAL MYCOTIC INFECTION [None]
  - DISCOMFORT [None]
  - BLOOD GLUCOSE INCREASED [None]
  - BLOOD URINE PRESENT [None]
  - INTERVERTEBRAL DISC PROTRUSION [None]
  - DIZZINESS [None]
  - PAIN [None]
  - LOSS OF CONSCIOUSNESS [None]
  - EYE MOVEMENT DISORDER [None]
  - CONFUSIONAL STATE [None]
  - CEREBRAL HAEMORRHAGE [None]
  - VIITH NERVE PARALYSIS [None]
  - BACK PAIN [None]
  - MITRAL VALVE INCOMPETENCE [None]
  - MUSCULOSKELETAL STIFFNESS [None]
  - UPPER RESPIRATORY TRACT INFECTION [None]
  - ORAL INFECTION [None]
  - TRICUSPID VALVE INCOMPETENCE [None]
